FAERS Safety Report 5369573-9 (Version None)
Quarter: 2007Q2

REPORT INFORMATION
  Report Type: 
  Country: None (occurrence: None)
  Receive Date: 20070625
  Receipt Date: 20070611
  Transmission Date: 20071010
  Serious: Yes (Other)
  Sender: FDA-Public Use
  Company Number: US-PFIZER INC-2007003256

PATIENT
  Sex: Female
  Weight: 48.1 kg

DRUGS (2)
  1. DEPO-PROVERA SUSPENSION/INJ [Suspect]
     Indication: CONTRACEPTION
     Dosage: FREQ:1ST INJECTION
     Route: 030
     Dates: start: 20031001, end: 20031001
  2. DEPO-PROVERA SUSPENSION/INJ [Suspect]
     Dosage: FREQ:LAST INJECTION
     Route: 030
     Dates: start: 20050428, end: 20050428

REACTIONS (12)
  - AMENORRHOEA [None]
  - BLOOD TRIGLYCERIDES INCREASED [None]
  - FATIGUE [None]
  - GLUCOSE TOLERANCE IMPAIRED [None]
  - HORMONE LEVEL ABNORMAL [None]
  - KELOID SCAR [None]
  - LIVER FUNCTION TEST ABNORMAL [None]
  - MALAISE [None]
  - RENAL IMPAIRMENT [None]
  - SKIN STRIAE [None]
  - SWELLING [None]
  - WEIGHT INCREASED [None]
